FAERS Safety Report 5972895-1 (Version None)
Quarter: 2008Q4

REPORT INFORMATION
  Report Type: 
  Country: None (occurrence: None)
  Receive Date: 20081201
  Receipt Date: 20081118
  Transmission Date: 20090506
  Serious: Yes (Other)
  Sender: FDA-Public Use
  Company Number: PHHY2008IT29331

PATIENT
  Sex: Female

DRUGS (2)
  1. LEPONEX [Suspect]
     Dosage: 25MG/DAY
     Dates: start: 20070101
  2. LEPONEX [Suspect]
     Dosage: 100MG/DAY
     Dates: end: 20071201

REACTIONS (5)
  - DELIRIUM [None]
  - ENURESIS [None]
  - MANIA [None]
  - OBSESSIVE THOUGHTS [None]
  - RESTLESSNESS [None]
